FAERS Safety Report 14043468 (Version 1)
Quarter: 2017Q4

REPORT INFORMATION
  Report Type: Spontaneous
  Country: CA (occurrence: CA)
  Receive Date: 20171004
  Receipt Date: 20171004
  Transmission Date: 20180321
  Serious: Yes (Other)
  Sender: FDA-Public Use
  Company Number: CA-PFIZER INC-2017304826

PATIENT
  Age: 58 Year
  Sex: Female

DRUGS (7)
  1. XELJANZ [Suspect]
     Active Substance: TOFACITINIB CITRATE
     Indication: RHEUMATOID ARTHRITIS
     Dosage: 5 MG, DAILY
     Route: 048
     Dates: start: 20170704
  2. VALSARTAN. [Concomitant]
     Active Substance: VALSARTAN
     Dosage: 40 MG, DAILY
     Route: 065
  3. NEXIUM [Concomitant]
     Active Substance: ESOMEPRAZOLE MAGNESIUM
     Dosage: 40 MG, DAILY
     Route: 065
  4. XELJANZ [Suspect]
     Active Substance: TOFACITINIB CITRATE
     Dosage: 1 DF, 1X/DAY
     Route: 048
     Dates: end: 2017
  5. PIROXICAM. [Concomitant]
     Active Substance: PIROXICAM
     Dosage: 20 MG, DAILY
     Route: 065
  6. XELJANZ [Suspect]
     Active Substance: TOFACITINIB CITRATE
     Dosage: 5 MG, TWICE DAILY
     Route: 048
     Dates: start: 20170718
  7. ARAVA [Concomitant]
     Active Substance: LEFLUNOMIDE
     Indication: RHEUMATOID ARTHRITIS
     Dosage: 20 MG, DAILY
     Route: 065

REACTIONS (10)
  - Pain [Unknown]
  - Gait inability [Recovering/Resolving]
  - Nausea [Recovered/Resolved]
  - Fluid retention [Recovering/Resolving]
  - Dyspnoea [Recovering/Resolving]
  - Fatigue [Recovering/Resolving]
  - Drug ineffective [Unknown]
  - Condition aggravated [Recovered/Resolved]
  - Temperature intolerance [Unknown]
  - Swelling [Recovering/Resolving]
